FAERS Safety Report 12695369 (Version 1)
Quarter: 2016Q3

REPORT INFORMATION
  Report Type: Spontaneous
  Country: US (occurrence: US)
  Receive Date: 20160829
  Receipt Date: 20160829
  Transmission Date: 20161109
  Serious: Yes (Congenital Anomaly, Other)
  Sender: FDA-Public Use
  Company Number: US-BION-20160450

PATIENT

DRUGS (1)
  1. PROGESTERONE CAPSULES [Suspect]
     Active Substance: PROGESTERONE
     Dosage: 1 DF QD, VAGINAL
     Route: 064

REACTIONS (3)
  - Foetal growth restriction [Unknown]
  - Foetal heart rate abnormal [Unknown]
  - Congenital anomaly [Unknown]
